FAERS Safety Report 10489260 (Version 1)
Quarter: 2014Q4

REPORT INFORMATION
  Report Type: Spontaneous
  Country: US (occurrence: US)
  Receive Date: 20141002
  Receipt Date: 20141002
  Transmission Date: 20150528
  Serious: Yes (Other)
  Sender: FDA-Public Use
  Company Number: US-TEVA-512380USA

PATIENT
  Sex: Female

DRUGS (1)
  1. CALCITRIOL. [Suspect]
     Active Substance: CALCITRIOL

REACTIONS (1)
  - Coeliac disease [Unknown]
